FAERS Safety Report 15698168 (Version 1)
Quarter: 2018Q4

REPORT INFORMATION
  Report Type: Spontaneous
  Country: US (occurrence: US)
  Receive Date: 20181126
  Receipt Date: 20181126
  Transmission Date: 20190205
  Serious: No
  Sender: FDA-Public Use
  Company Number: None

PATIENT
  Age: 62 Year
  Sex: Female

DRUGS (1)
  1. GENOTROPIN [Suspect]
     Active Substance: SOMATROPIN
     Indication: POSTOPERATIVE HYPOPITUITARISM
     Route: 058
     Dates: start: 201711, end: 201811

REACTIONS (4)
  - Back pain [None]
  - Bone pain [None]
  - Musculoskeletal chest pain [None]
  - Inability to afford medication [None]

NARRATIVE: CASE EVENT DATE: 201811
